FAERS Safety Report 12462237 (Version 1)
Quarter: 2016Q2

REPORT INFORMATION
  Report Type: Spontaneous
  Country: US (occurrence: US)
  Receive Date: 20160613
  Receipt Date: 20160613
  Transmission Date: 20160815
  Serious: Yes (Other)
  Sender: FDA-Public Use
  Company Number: US-AMGEN-USASP2016073921

PATIENT
  Age: 62 Year
  Sex: Male

DRUGS (1)
  1. VECTIBIX [Suspect]
     Active Substance: PANITUMUMAB
     Indication: COLON CANCER METASTATIC
     Dosage: UNK UNK, Q2WK
     Route: 065
     Dates: start: 20151030

REACTIONS (4)
  - Blood creatinine increased [Unknown]
  - Renal injury [Unknown]
  - Acute kidney injury [Unknown]
  - Glomerular filtration rate abnormal [Unknown]
